FAERS Safety Report 4544924-3 (Version None)
Quarter: 2005Q1

REPORT INFORMATION
  Report Type: 
  Country: None (occurrence: None)
  Receive Date: 20050103
  Receipt Date: 20050103
  Transmission Date: 20050727
  Serious: Yes (Life-Threatening, Hospitalization)
  Sender: FDA-Public Use
  Company Number: None

PATIENT
  Sex: Male
  Weight: 73 kg

DRUGS (2)
  1. HEPARIN [Suspect]
     Indication: ANTICOAGULANT THERAPY
     Dosage: 600U IV Q 1HR
     Route: 042
     Dates: start: 20031111, end: 20031119
  2. HEPARIN [Suspect]
     Indication: HIP ARTHROPLASTY
     Dosage: 600U IV Q 1HR
     Route: 042
     Dates: start: 20031111, end: 20031119

REACTIONS (1)
  - HEPARIN-INDUCED THROMBOCYTOPENIA [None]
